FAERS Safety Report 23087997 (Version 2)
Quarter: 2023Q4

REPORT INFORMATION
  Report Type: Spontaneous
  Country: US (occurrence: US)
  Receive Date: 20231020
  Receipt Date: 20231229
  Transmission Date: 20240110
  Serious: No
  Sender: FDA-Public Use
  Company Number: US-002147023-NVSC2023US225423

PATIENT
  Sex: Female
  Weight: 64.41 kg

DRUGS (1)
  1. KESIMPTA [Suspect]
     Active Substance: OFATUMUMAB
     Indication: Relapsing-remitting multiple sclerosis
     Dosage: 20 MG (Q 28 DAYS)
     Route: 058
     Dates: start: 20230726, end: 20231017

REACTIONS (5)
  - Vaginal infection [Unknown]
  - Urinary tract infection [Unknown]
  - Oral herpes [Unknown]
  - Pruritus [Unknown]
  - Urticaria [Unknown]
